FAERS Safety Report 21209399 (Version 1)
Quarter: 2022Q3

REPORT INFORMATION
  Report Type: Report from Study
  Country: IL (occurrence: IL)
  Receive Date: 20220813
  Receipt Date: 20220813
  Transmission Date: 20221027
  Serious: Yes (Other)
  Sender: FDA-Public Use
  Company Number: IL-19K-082-2976269-00

PATIENT
  Age: 59 Year
  Sex: Male
  Weight: 80 kg

DRUGS (32)
  1. VENETOCLAX [Suspect]
     Active Substance: VENETOCLAX
     Indication: Chronic lymphocytic leukaemia
     Route: 048
     Dates: start: 20190902, end: 20190902
  2. VENETOCLAX [Suspect]
     Active Substance: VENETOCLAX
     Dosage: TITRATION (RAMP-UP)-DOSE INCREASE ACCORDING TO VENETOCLAX DOSE TITRATION SCHEME
     Route: 048
     Dates: start: 20190909, end: 20190914
  3. VENETOCLAX [Suspect]
     Active Substance: VENETOCLAX
     Dosage: TITRATION (RAMP-UP)-DOSE INCREASE ACCORDING TO VENETOCLAX DOSE TITRATION SCHEME
     Route: 048
     Dates: start: 20190915, end: 20190921
  4. VENETOCLAX [Suspect]
     Active Substance: VENETOCLAX
     Dosage: TITRATION (RAMP-UP)-DOSE INCREASE ACCORDING TO VENETOCLAX DOSE TITRATION SCHEME
     Route: 048
     Dates: start: 20190922, end: 20191001
  5. VENETOCLAX [Suspect]
     Active Substance: VENETOCLAX
     Dosage: TITRATION (RAMP-UP)-DOSE INCREASE ACCORDING TO VENETOCLAX DOSE TITRATION SCHEME
     Route: 048
     Dates: start: 20190905, end: 20190908
  6. VENETOCLAX [Suspect]
     Active Substance: VENETOCLAX
     Dosage: TITRATION (RAMP-UP)-DOSE INCREASE ACCORDING TO VENETOCLAX DOSE TITRATION SCHEME
     Route: 048
     Dates: start: 20191002
  7. RITUXIMAB [Suspect]
     Active Substance: RITUXIMAB
     Indication: Monoclonal antibody unconjugated therapy
     Dosage: CYCLE NUMBER -1
     Route: 065
     Dates: start: 20191010, end: 20191010
  8. RITUXIMAB [Suspect]
     Active Substance: RITUXIMAB
     Indication: Chronic lymphocytic leukaemia
     Dosage: CYCLE NUMBER -2
     Route: 065
     Dates: start: 20191107, end: 20191107
  9. RITUXIMAB [Suspect]
     Active Substance: RITUXIMAB
     Dosage: CYCLE NUMBER -3
     Route: 065
     Dates: start: 20191204, end: 20191204
  10. RITUXIMAB [Suspect]
     Active Substance: RITUXIMAB
     Dosage: CYCLE NUMBER -4
     Route: 065
     Dates: start: 20200115, end: 20200115
  11. RITUXIMAB [Suspect]
     Active Substance: RITUXIMAB
     Dosage: CYCLE NUMBER -5
     Route: 065
     Dates: start: 20200220, end: 20200220
  12. RITUXIMAB [Suspect]
     Active Substance: RITUXIMAB
     Dosage: 1003 MILLIGRAM
     Route: 065
     Dates: start: 20200525, end: 20200525
  13. FEBUXOSTAT [Concomitant]
     Active Substance: FEBUXOSTAT
     Indication: Prophylaxis
     Route: 065
     Dates: start: 20190818
  14. METFORMIN [Concomitant]
     Active Substance: METFORMIN HYDROCHLORIDE
     Indication: Diabetes mellitus
  15. ACETAMINOPHEN [Concomitant]
     Active Substance: ACETAMINOPHEN
     Indication: Premedication
     Dates: start: 20191010, end: 20191010
  16. ACETAMINOPHEN [Concomitant]
     Active Substance: ACETAMINOPHEN
     Dates: start: 20191107, end: 20191107
  17. ACETAMINOPHEN [Concomitant]
     Active Substance: ACETAMINOPHEN
     Dates: start: 20191204, end: 20191204
  18. ACETAMINOPHEN [Concomitant]
     Active Substance: ACETAMINOPHEN
     Dates: start: 20200115, end: 20200115
  19. ACETAMINOPHEN [Concomitant]
     Active Substance: ACETAMINOPHEN
     Dates: start: 20200220, end: 20200220
  20. ACETAMINOPHEN [Concomitant]
     Active Substance: ACETAMINOPHEN
     Dates: start: 20210525, end: 20210525
  21. HYDROCORTISONE [Concomitant]
     Active Substance: HYDROCORTISONE
     Indication: Premedication
     Dates: start: 20191010, end: 20191010
  22. HYDROCORTISONE [Concomitant]
     Active Substance: HYDROCORTISONE
     Dates: start: 20191107, end: 20191107
  23. HYDROCORTISONE [Concomitant]
     Active Substance: HYDROCORTISONE
     Dates: start: 20191204, end: 20191204
  24. HYDROCORTISONE [Concomitant]
     Active Substance: HYDROCORTISONE
     Dates: start: 20200115, end: 20200115
  25. HYDROCORTISONE [Concomitant]
     Active Substance: HYDROCORTISONE
     Dates: start: 20200220, end: 20200220
  26. HYDROCORTISONE [Concomitant]
     Active Substance: HYDROCORTISONE
     Dates: start: 20210525, end: 20210525
  27. PROMETHAZINE [Concomitant]
     Active Substance: PROMETHAZINE HYDROCHLORIDE
     Indication: Premedication
     Dates: start: 20191107, end: 20191107
  28. PROMETHAZINE [Concomitant]
     Active Substance: PROMETHAZINE HYDROCHLORIDE
     Dates: start: 20191204, end: 20191204
  29. LORATADINE [Concomitant]
     Active Substance: LORATADINE
     Indication: Premedication
     Dates: start: 20200115, end: 20200115
  30. LORATADINE [Concomitant]
     Active Substance: LORATADINE
     Dates: start: 20200220, end: 20200220
  31. COVID-19 VACCINE NOS [Concomitant]
     Active Substance: COVID-19 VACCINE NOS
     Indication: COVID-19 prophylaxis
     Route: 030
     Dates: start: 20210115, end: 20210115
  32. LORATADINE [Concomitant]
     Active Substance: LORATADINE
     Indication: Allergy prophylaxis
     Dates: start: 20210525, end: 20210525

REACTIONS (12)
  - Disease progression [Unknown]
  - Lymphadenopathy [Unknown]
  - Neutrophil count decreased [Recovered/Resolved]
  - Neutrophil count decreased [Recovered/Resolved]
  - Neutrophil count decreased [Recovered/Resolved]
  - Neutrophil count decreased [Recovered/Resolved]
  - Anaemia [Recovered/Resolved]
  - Anaemia [Recovered/Resolved]
  - Anaemia [Recovered/Resolved]
  - Neutropenia [Recovered/Resolved]
  - Tumour lysis syndrome [Recovered/Resolved]
  - Thrombocytopenia [Recovered/Resolved]

NARRATIVE: CASE EVENT DATE: 20190902
